FAERS Safety Report 9946685 (Version 2)
Quarter: 2014Q1

REPORT INFORMATION
  Report Type: Spontaneous
  Country: US (occurrence: US)
  Receive Date: 20140303
  Receipt Date: 20140303
  Transmission Date: 20141002
  Serious: No
  Sender: FDA-Public Use
  Company Number: US-AMGEN-USASP2014002116

PATIENT
  Age: 57 Year
  Sex: Male

DRUGS (7)
  1. ENBREL [Suspect]
     Indication: RHEUMATOID ARTHRITIS
     Dosage: 50 MG, QWK
     Route: 058
     Dates: start: 20130926
  2. IBUPROFEN [Concomitant]
     Dosage: 800 MG, BID
     Route: 048
  3. PREDNISONE [Concomitant]
     Dosage: 30 MG, QD X 3 DAYS
     Route: 048
  4. PREDNISONE [Concomitant]
     Dosage: 20 MG, QD X 3 DAYS
     Route: 048
  5. PREDNISONE [Concomitant]
     Dosage: 10 MG, QD X 3 DAYS
     Route: 048
  6. METHOTREXATE [Concomitant]
     Dosage: 8 TABLETS ONCE A WEEK
     Route: 048
  7. OMEPRAZOLE [Concomitant]
     Dosage: 20 MG, QD
     Route: 048

REACTIONS (2)
  - Nasopharyngitis [Unknown]
  - Influenza [Unknown]
